FAERS Safety Report 10009684 (Version 2)
Quarter: 2014Q1

REPORT INFORMATION
  Report Type: Spontaneous
  Country: US (occurrence: US)
  Receive Date: 20140312
  Receipt Date: 20140312
  Transmission Date: 20141002
  Serious: No
  Sender: FDA-Public Use
  Company Number: US-INCYTE CORPORATION-2012IN002192

PATIENT
  Age: 46 Year
  Sex: Female
  Weight: 74.4 kg

DRUGS (9)
  1. JAKAFI [Suspect]
     Indication: MYELOFIBROSIS
     Dosage: 10 MG, BID
     Route: 048
     Dates: start: 20120617
  2. ASPIRIN [Concomitant]
     Dosage: 325 MG, QD
  3. MULTIVITAMIN [Concomitant]
     Dosage: UNK, QD
  4. FISH OIL [Concomitant]
     Dosage: UNK, QD
  5. VITAMIN B12 COMPLEX [Concomitant]
     Dosage: UNK, QD
  6. VITAMIN D [Concomitant]
     Dosage: 50000 IU, QW
  7. VALTREX [Concomitant]
     Dosage: 500 MG, BID
     Route: 048
  8. NEURONTIN [Concomitant]
     Indication: RESTLESS LEGS SYNDROME
     Dosage: 20 MG, QHS
     Route: 048
  9. CELEXA [Concomitant]
     Dosage: 20 MG, QD
     Route: 048

REACTIONS (7)
  - Hyperhidrosis [Unknown]
  - Dyspnoea exertional [Unknown]
  - Nausea [Unknown]
  - Contusion [None]
  - Epistaxis [Not Recovered/Not Resolved]
  - Abdominal pain upper [Unknown]
  - Fatigue [None]
